FAERS Safety Report 6969487-4 (Version None)
Quarter: 2010Q3

REPORT INFORMATION
  Report Type: 
  Country: None (occurrence: None)
  Receive Date: 20100902
  Receipt Date: 20100817
  Transmission Date: 20110219
  Serious: Yes (Hospitalization)
  Sender: FDA-Public Use
  Company Number: 2010003568

PATIENT
  Age: 73 Year
  Sex: Female

DRUGS (15)
  1. ERLOTINIB HYDROCHLORIDE [Suspect]
     Indication: NON-SMALL CELL LUNG CANCER
     Dosage: (150 MG,QD),ORAL
     Route: 048
     Dates: start: 20100513
  2. PACLITAXEL [Suspect]
     Indication: NON-SMALL CELL LUNG CANCER
  3. ALPRAZOLAM [Concomitant]
  4. CIPROFLOXACIN [Concomitant]
  5. DEXAMETHASONE [Concomitant]
  6. DOCUSATE SODIUM (DOCUSATE SODIUM) [Concomitant]
  7. HYDROCODONE BITARTRATE [Concomitant]
  8. MAGNESIUM OXIDE (MAGNESIUM OXIDE) [Concomitant]
  9. PROMETHAZINE HYDROCHLORIDE (PROMETHAZINE HYDROCHLORIDE) [Concomitant]
  10. SIMVASTATIN [Concomitant]
  11. TESSALON [Concomitant]
  12. TUSSIONEX [Concomitant]
  13. ACETAMINOPHEN [Concomitant]
  14. URISPAS [Concomitant]
  15. ZOFRAN [Concomitant]

REACTIONS (10)
  - BILE DUCT STONE [None]
  - BLOOD POTASSIUM DECREASED [None]
  - CHOLECYSTITIS [None]
  - DIARRHOEA [None]
  - FALL [None]
  - LYMPHOCYTE COUNT DECREASED [None]
  - OROPHARYNGEAL PAIN [None]
  - PROTEIN URINE PRESENT [None]
  - SMALL INTESTINAL OBSTRUCTION [None]
  - SYNCOPE [None]
